FAERS Safety Report 5912094-2 (Version None)
Quarter: 2008Q4

REPORT INFORMATION
  Report Type: 
  Country: None (occurrence: None)
  Receive Date: 20081007
  Receipt Date: 20081007
  Transmission Date: 20090506
  Serious: Yes (Other)
  Sender: FDA-Public Use
  Company Number: None

PATIENT
  Age: 39 Year
  Sex: Male
  Weight: 70.3075 kg

DRUGS (2)
  1. CYCLOSPORINE [Suspect]
     Dosage: 100 MG. 2X/DAY ORAL
     Route: 048
     Dates: start: 20030916
  2. CYCLOSPORINE [Suspect]
     Dosage: 100 MG. 2X/DAY ORAL
     Route: 048
     Dates: start: 20080928

REACTIONS (2)
  - DRUG LEVEL CHANGED [None]
  - THERAPEUTIC RESPONSE UNEXPECTED WITH DRUG SUBSTITUTION [None]
